FAERS Safety Report 5046470-X (Version None)
Quarter: 2006Q3

REPORT INFORMATION
  Report Type: 
  Country: None (occurrence: None)
  Receive Date: 20060710
  Receipt Date: 20060627
  Transmission Date: 20061208
  Serious: Yes (Other)
  Sender: FDA-Public Use
  Company Number: GB-ROCHE-453814

PATIENT
  Age: 54 Year
  Sex: Female

DRUGS (2)
  1. PEG-INTERFERON ALFA 2A (RO 25-8310) [Suspect]
     Route: 065
  2. RIBAVIRIN [Suspect]
     Dosage: UNITS REPORTED MG/DAY
     Route: 065

REACTIONS (3)
  - HYPOPHYSITIS [None]
  - HYPOTHALAMO-PITUITARY DISORDERS [None]
  - HYPOTHYROIDISM [None]
